FAERS Safety Report 14015108 (Version 2)
Quarter: 2017Q4

REPORT INFORMATION
  Report Type: Report from Study
  Country: US (occurrence: US)
  Receive Date: 20170927
  Receipt Date: 20171004
  Transmission Date: 20180321
  Serious: Yes (Death)
  Sender: FDA-Public Use
  Company Number: US-ROCHE-1999197

PATIENT
  Age: 60 Year
  Sex: Female

DRUGS (3)
  1. HERCEPTIN [Suspect]
     Active Substance: TRASTUZUMAB
     Indication: BREAST CANCER FEMALE
     Route: 065
     Dates: start: 20140624
  2. TYKERB [Concomitant]
     Active Substance: LAPATINIB DITOSYLATE
  3. CAPECITABINE. [Concomitant]
     Active Substance: CAPECITABINE

REACTIONS (2)
  - Confusional state [Fatal]
  - Failure to thrive [Fatal]

NARRATIVE: CASE EVENT DATE: 20170519
